FAERS Safety Report 6736622-2 (Version None)
Quarter: 2010Q2

REPORT INFORMATION
  Report Type: 
  Country: None (occurrence: None)
  Receive Date: 20100521
  Receipt Date: 20100511
  Transmission Date: 20101027
  Serious: Yes (Other)
  Sender: FDA-Public Use
  Company Number: US-WYE-H15092710

PATIENT
  Sex: Female
  Weight: 56.75 kg

DRUGS (11)
  1. PRISTIQ [Suspect]
     Indication: DEPRESSION
     Dosage: UNKNOWN DOSE, ONCE DAILY
     Route: 048
     Dates: start: 20090101
  2. PRISTIQ [Suspect]
     Indication: ANXIETY
     Route: 048
     Dates: end: 20100503
  3. PRISTIQ [Suspect]
     Dosage: ONE HALF OF A 50 MG TABLET
     Route: 048
     Dates: start: 20100504, end: 20100504
  4. PRISTIQ [Suspect]
     Route: 048
     Dates: start: 20100505, end: 20100501
  5. PRISTIQ [Suspect]
     Route: 048
     Dates: start: 20100501
  6. PERCOCET [Concomitant]
  7. AZELASTINE HCL [Concomitant]
  8. FLONASE [Concomitant]
  9. SINGULAIR [Concomitant]
  10. XANAX [Concomitant]
     Dosage: 0.25 MG INCREASED TO 0.5 MG, FREQUENCY UNKNOWN
  11. SOMA [Concomitant]

REACTIONS (13)
  - AGGRESSION [None]
  - ANXIETY [None]
  - BLOOD PRESSURE INCREASED [None]
  - CONSTIPATION [None]
  - FATIGUE [None]
  - HEADACHE [None]
  - HYPERHIDROSIS [None]
  - INSOMNIA [None]
  - IRRITABILITY [None]
  - MALIGNANT MELANOMA [None]
  - MEMORY IMPAIRMENT [None]
  - VITAMIN D DECREASED [None]
  - WEIGHT INCREASED [None]
